FAERS Safety Report 4907367-6 (Version None)
Quarter: 2006Q1

REPORT INFORMATION
  Report Type: 
  Country: None (occurrence: None)
  Receive Date: 20060208
  Receipt Date: 20060208
  Transmission Date: 20060701
  Serious: Yes (Death)
  Sender: FDA-Public Use
  Company Number: None

PATIENT
  Sex: Female

DRUGS (2)
  1. LEXAPRO [Suspect]
     Indication: ALCOHOLISM
     Dosage: 10 MG  DAILY  PO
     Route: 048
  2. SEROQUEL [Suspect]
     Indication: ALCOHOLISM
     Dosage: 100 MG  DAILY  PO
     Route: 048

REACTIONS (3)
  - ACCIDENTAL DEATH [None]
  - ALCOHOLISM [None]
  - DROWNING [None]
